FAERS Safety Report 8614772-3 (Version None)
Quarter: 2012Q3

REPORT INFORMATION
  Report Type: 
  Country: None (occurrence: None)
  Receive Date: 20120823
  Receipt Date: 20120814
  Transmission Date: 20120928
  Serious: Yes (Death)
  Sender: FDA-Public Use
  Company Number: US-009507513-1208USA006746

PATIENT

DRUGS (16)
  1. SODIUM CHLORIDE [Concomitant]
     Dosage: SALINE NASAL SPRAY
  2. SUDAFED 12 HOUR [Concomitant]
     Dosage: UNK, PRN
  3. TUSSIONEX (BROMHEXINE HYDROCHLORIDE) [Concomitant]
     Indication: COUGH
     Dosage: UNK, PRN
  4. PYRIDOXINE HCL [Concomitant]
     Dosage: 50 MG, BID
  5. VIACTIV SOFT CALCIUM CHEWS [Concomitant]
     Dosage: UNK, BID
  6. TYLENOL [Concomitant]
     Dosage: 500 MG, PRN
  7. GUAIFENESIN [Concomitant]
     Indication: COUGH
     Dosage: UNK, PRN
  8. FOSAMAX [Suspect]
     Indication: OSTEOPOROSIS
     Route: 048
  9. ZOFRAN [Concomitant]
     Dosage: UNK, PRN
  10. OXYCONTIN [Concomitant]
     Dosage: 10 MG, Q12H
  11. AMBIEN [Concomitant]
     Dosage: 5 MG, HS
  12. KLONOPIN [Concomitant]
     Dosage: 5 MG, HS
  13. OXYCODONE HCL [Concomitant]
     Indication: PAIN
     Dosage: 10-20 MG Q 3-4 H PRN
  14. SENOKOT (SENNOSIDES) [Concomitant]
     Dosage: UNK, PRN
  15. CYANOCOBALAMIN [Concomitant]
     Dosage: 1 NG, QD
  16. CHLORASEPTIC SPRAY + GARGLE [Concomitant]
     Dosage: UNK, PRN

REACTIONS (4)
  - DYSPEPSIA [None]
  - DEEP VEIN THROMBOSIS [None]
  - NON-SMALL CELL LUNG CANCER [None]
  - DRUG INTOLERANCE [None]
